FAERS Safety Report 11936420 (Version 1)
Quarter: 2016Q1

REPORT INFORMATION
  Report Type: Spontaneous
  Country: TW (occurrence: TW)
  Receive Date: 20160121
  Receipt Date: 20160121
  Transmission Date: 20160526
  Serious: Yes (Hospitalization, Other)
  Sender: FDA-Public Use
  Company Number: TW-SA-2016SA006315

PATIENT
  Sex: Male

DRUGS (1)
  1. FABRAZYME [Suspect]
     Active Substance: AGALSIDASE BETA
     Indication: FABRY^S DISEASE
     Dosage: DOSE: 2 VIALS
     Route: 041
     Dates: start: 20150128

REACTIONS (4)
  - Pulmonary oedema [Unknown]
  - Renal disorder [Unknown]
  - Hyponatraemia [Unknown]
  - Generalised oedema [Unknown]

NARRATIVE: CASE EVENT DATE: 201512
